FAERS Safety Report 4865355-2 (Version None)
Quarter: 2005Q4

REPORT INFORMATION
  Report Type: 
  Country: None (occurrence: None)
  Receive Date: 20051223
  Receipt Date: 20051214
  Transmission Date: 20060501
  Serious: Yes (Hospitalization)
  Sender: FDA-Public Use
  Company Number: US-ABBOTT-05P-163-0319562-00

PATIENT
  Sex: Female
  Weight: 74.456 kg

DRUGS (3)
  1. BIAXIN [Suspect]
     Indication: SINUSITIS
     Route: 048
     Dates: start: 20051030, end: 20051031
  2. BENICAR HCT [Concomitant]
     Indication: HYPERTENSION
     Route: 048
  3. ALLEGRA [Concomitant]
     Indication: HYPERSENSITIVITY
     Route: 048

REACTIONS (3)
  - CONVULSION [None]
  - SINUS TACHYCARDIA [None]
  - VOMITING [None]
